FAERS Safety Report 7389580-4 (Version None)
Quarter: 2011Q2

REPORT INFORMATION
  Report Type: 
  Country: None (occurrence: None)
  Receive Date: 20110401
  Receipt Date: 20110328
  Transmission Date: 20111010
  Serious: Yes (Hospitalization)
  Sender: FDA-Public Use
  Company Number: PHHY2011BG12060

PATIENT
  Age: 71 Year
  Sex: Male

DRUGS (3)
  1. RASILEZ [Suspect]
     Indication: ESSENTIAL HYPERTENSION
     Dosage: 300 MG, QD
  2. CO-RENITEC [Concomitant]
     Dosage: 20/12.5 MG
  3. NEBIVOLOL HCL [Concomitant]
     Dosage: 5 MG, UNK

REACTIONS (3)
  - URINE ABNORMALITY [None]
  - LEUKOCYTOSIS [None]
  - OLIGURIA [None]
